FAERS Safety Report 4435810-8 (Version None)
Quarter: 2004Q3

REPORT INFORMATION
  Report Type: 
  Country: None (occurrence: None)
  Receive Date: 20040726
  Receipt Date: 20040415
  Transmission Date: 20050211
  Serious: No
  Sender: FDA-Public Use
  Company Number: USA040465111

PATIENT
  Age: 68 Year
  Sex: Female

DRUGS (17)
  1. FORTEO [Suspect]
     Indication: OSTEOPOROSIS
     Dosage: 20 U DAY
     Dates: start: 20040301
  2. IMDUR [Concomitant]
  3. TENORMIN [Concomitant]
  4. LANOXIN [Concomitant]
  5. NORVASC [Concomitant]
  6. AGGRENOX [Concomitant]
  7. COZAAR [Concomitant]
  8. GLUCOPHAGE [Concomitant]
  9. BEXTRA [Concomitant]
  10. ASPIRIN [Concomitant]
  11. NIACIN [Concomitant]
  12. CALCIUM WITH VITAMIN D [Concomitant]
  13. MIACALCIN [Concomitant]
  14. NITROGLYCERIN [Concomitant]
  15. VITAMIN E [Concomitant]
  16. OCUVITE [Concomitant]
  17. PROTONIX [Concomitant]

REACTIONS (5)
  - ARTHRALGIA [None]
  - FATIGUE [None]
  - NAUSEA [None]
  - PAIN [None]
  - PAIN IN EXTREMITY [None]
